FAERS Safety Report 14278432 (Version 1)
Quarter: 2017Q4

REPORT INFORMATION
  Report Type: Spontaneous
  Country: US (occurrence: US)
  Receive Date: 20171211
  Receipt Date: 20171211
  Transmission Date: 20180321
  Serious: Yes (Hospitalization, Other)
  Sender: FDA-Public Use
  Company Number: US-OTSUKA-DJ201401082

PATIENT

DRUGS (1)
  1. ABILIFY [Suspect]
     Active Substance: ARIPIPRAZOLE
     Indication: ANXIETY
     Route: 065

REACTIONS (9)
  - Blood glucose decreased [Unknown]
  - Nausea [Unknown]
  - Dehydration [Unknown]
  - Suicidal ideation [Unknown]
  - Weight decreased [Unknown]
  - Vomiting [Unknown]
  - Ketoacidosis [Unknown]
  - Hypersomnia [Unknown]
  - Off label use [Unknown]

NARRATIVE: CASE EVENT DATE: 201311
